FAERS Safety Report 8886263 (Version 1)
Quarter: 2012Q4

REPORT INFORMATION
  Report Type: 
  Country: IT (occurrence: IT)
  Receive Date: 20121105
  Receipt Date: 20121105
  Transmission Date: 20130627
  Serious: Yes (Hospitalization)
  Sender: FDA-Public Use
  Company Number: IT-ASTRAZENECA-2012SE82286

PATIENT
  Age: 83 Year
  Sex: Female

DRUGS (7)
  1. SEROQUEL [Suspect]
     Indication: SENILE PSYCHOSIS
     Route: 048
     Dates: start: 20121001, end: 20121023
  2. SERENASE [Suspect]
     Indication: SENILE PSYCHOSIS
     Dosage: 2 mg/ml oral drops
     Route: 048
     Dates: start: 20121001, end: 20121023
  3. ATENOLOL [Concomitant]
  4. MODURETIC [Concomitant]
  5. SIMVASTATIN [Concomitant]
  6. ASPIRIN [Concomitant]
     Dosage: 100 mg gastroresistant tablets
     Route: 048
  7. EXELON [Concomitant]
     Indication: DEMENTIA ALZHEIMER^S TYPE

REACTIONS (2)
  - Long QT syndrome [Recovering/Resolving]
  - Off label use [Unknown]
